FAERS Safety Report 13583882 (Version 1)
Quarter: 2017Q2

REPORT INFORMATION
  Report Type: Spontaneous
  Country: US (occurrence: US)
  Receive Date: 20170526
  Receipt Date: 20170526
  Transmission Date: 20170830
  Serious: No
  Sender: FDA-Public Use
  Company Number: US-ASTRAZENECA-2017SE55215

PATIENT
  Sex: Female

DRUGS (1)
  1. ANASTRAZOLE [Suspect]
     Active Substance: ANASTROZOLE
     Indication: BREAST CANCER
     Dosage: DAILY
     Route: 048
     Dates: start: 201204, end: 201704

REACTIONS (5)
  - Feeling abnormal [Unknown]
  - Joint stiffness [Unknown]
  - Low density lipoprotein increased [Unknown]
  - Bone density decreased [Unknown]
  - Adverse drug reaction [Unknown]
